FAERS Safety Report 12945795 (Version 3)
Quarter: 2017Q1

REPORT INFORMATION
  Report Type: Spontaneous
  Country: FR (occurrence: FR)
  Receive Date: 20161115
  Receipt Date: 20170126
  Transmission Date: 20170428
  Serious: Yes (Hospitalization, Other)
  Sender: FDA-Public Use
  Company Number: FR-009507513-1611FRA005438

PATIENT
  Age: 71 Year
  Sex: Male

DRUGS (2)
  1. ONCOTICE [Suspect]
     Active Substance: BACILLUS CALMETTE-GUERIN SUBSTRAIN TICE LIVE ANTIGEN
     Indication: BLADDER TRANSITIONAL CELL CARCINOMA
     Dosage: UNK
     Dates: start: 20161021, end: 20161021
  2. TAVANIC [Suspect]
     Active Substance: LEVOFLOXACIN
     Dosage: 1 TABLET, ONCE
     Route: 048
     Dates: start: 201610, end: 201610

REACTIONS (6)
  - Pollakiuria [Not Recovered/Not Resolved]
  - Dysuria [Recovering/Resolving]
  - Micturition urgency [Not Recovered/Not Resolved]
  - Lymphadenitis [Unknown]
  - Enterococcus test positive [Unknown]
  - Diplegia [Unknown]

NARRATIVE: CASE EVENT DATE: 2016
